FAERS Safety Report 7906759-0 (Version None)
Quarter: 2011Q4

REPORT INFORMATION
  Report Type: 
  Country: None (occurrence: None)
  Receive Date: 20111109
  Receipt Date: 20111109
  Transmission Date: 20120403
  Serious: Yes (Life-Threatening, Hospitalization)
  Sender: FDA-Public Use
  Company Number: None

PATIENT
  Age: 44 Year
  Sex: Female
  Weight: 81.6475 kg

DRUGS (1)
  1. TYSABRI [Suspect]
     Indication: MULTIPLE SCLEROSIS
     Dosage: TYSABRI 300MG ONCE IV
     Route: 042
     Dates: start: 20110921

REACTIONS (3)
  - SENSATION OF FOREIGN BODY [None]
  - WHEEZING [None]
  - TONGUE PRURITUS [None]
